FAERS Safety Report 8062913-1 (Version None)
Quarter: 2012Q1

REPORT INFORMATION
  Report Type: 
  Country: None (occurrence: None)
  Receive Date: 20120123
  Receipt Date: 20120123
  Transmission Date: 20120608
  Serious: Yes (Other)
  Sender: FDA-Public Use
  Company Number: None

PATIENT
  Age: 54 Year
  Sex: Male
  Weight: 99.79 kg

DRUGS (1)
  1. PRADAXA [Suspect]
     Indication: ATRIAL FIBRILLATION
     Dosage: 150MG
     Route: 048
     Dates: start: 20110906, end: 20120112

REACTIONS (15)
  - AGITATION [None]
  - URINE COLOUR ABNORMAL [None]
  - CHEST PAIN [None]
  - SENSATION OF PRESSURE [None]
  - DYSARTHRIA [None]
  - DIZZINESS [None]
  - VISUAL IMPAIRMENT [None]
  - NAUSEA [None]
  - HEADACHE [None]
  - CONFUSIONAL STATE [None]
  - TINNITUS [None]
  - FATIGUE [None]
  - DYSPNOEA [None]
  - EYE PAIN [None]
  - NIGHT SWEATS [None]
